FAERS Safety Report 22950237 (Version 2)
Quarter: 2023Q4

REPORT INFORMATION
  Report Type: Spontaneous
  Country: US (occurrence: US)
  Receive Date: 20230915
  Receipt Date: 20231023
  Transmission Date: 20240110
  Serious: No
  Sender: FDA-Public Use
  Company Number: US-PFIZER INC-PV202300154024

PATIENT
  Age: 68 Year
  Sex: Female

DRUGS (5)
  1. EXEMESTANE [Suspect]
     Active Substance: EXEMESTANE
     Dosage: UNK
     Dates: start: 202307, end: 2023
  2. TYVASO [Suspect]
     Active Substance: TREPROSTINIL
     Indication: Pulmonary arterial hypertension
     Dosage: UNK
     Dates: start: 202210
  3. TYVASO [Suspect]
     Active Substance: TREPROSTINIL
     Dosage: 108 UG, 4X/DAY (QID, INHALATION)
  4. AMBRISENTAN [Concomitant]
     Active Substance: AMBRISENTAN
     Dosage: UNK
     Dates: end: 202309
  5. SILDENAFIL [Concomitant]
     Active Substance: SILDENAFIL
     Dosage: 60 MG, 3X/DAY

REACTIONS (2)
  - Neoplasm progression [Unknown]
  - Rash pruritic [Recovered/Resolved]

NARRATIVE: CASE EVENT DATE: 20230101
